FAERS Safety Report 5751028-0 (Version None)
Quarter: 2008Q2

REPORT INFORMATION
  Report Type: 
  Country: None (occurrence: None)
  Receive Date: 20080528
  Receipt Date: 20080520
  Transmission Date: 20081010
  Serious: Yes (Other)
  Sender: FDA-Public Use
  Company Number: US-ALLERGAN-0806112US

PATIENT
  Sex: Female

DRUGS (1)
  1. CELLUVISC [Suspect]
     Indication: DRY EYE
     Dosage: UNK, QHS
     Route: 047

REACTIONS (2)
  - BLINDNESS [None]
  - EYE IRRITATION [None]
